FAERS Safety Report 15795538 (Version 1)
Quarter: 2019Q1

REPORT INFORMATION
  Report Type: Report from Study
  Country: US (occurrence: US)
  Receive Date: 20190107
  Receipt Date: 20190107
  Transmission Date: 20190417
  Serious: Yes (Hospitalization)
  Sender: FDA-Public Use
  Company Number: US-EXELIXIS-CABO-19018006

PATIENT
  Sex: Female

DRUGS (4)
  1. CABOMETYX [Suspect]
     Active Substance: CABOZANTINIB S-MALATE
     Indication: CARCINOID TUMOUR
  2. CABOMETYX [Suspect]
     Active Substance: CABOZANTINIB S-MALATE
     Indication: LUNG NEOPLASM MALIGNANT
     Dosage: 60 MG, QD
     Route: 048
     Dates: start: 20170413
  3. CABOMETYX [Suspect]
     Active Substance: CABOZANTINIB S-MALATE
     Indication: NEUROENDOCRINE TUMOUR
  4. CABOMETYX [Suspect]
     Active Substance: CABOZANTINIB S-MALATE
     Indication: METASTASES TO LUNG

REACTIONS (1)
  - Limb discomfort [Unknown]
